FAERS Safety Report 17504649 (Version 2)
Quarter: 2020Q2

REPORT INFORMATION
  Report Type: Spontaneous
  Country: US (occurrence: US)
  Receive Date: 20200305
  Receipt Date: 20200408
  Transmission Date: 20200713
  Serious: No
  Sender: FDA-Public Use
  Company Number: US-SA-2020SA054616

PATIENT
  Age: 69 Year
  Sex: Female

DRUGS (1)
  1. TOUJEO [Suspect]
     Active Substance: INSULIN GLARGINE
     Dosage: 32 IU, QD
     Route: 065

REACTIONS (2)
  - Incorrect dose administered by device [Unknown]
  - Wrong technique in device usage process [Unknown]
